FAERS Safety Report 6445595-1 (Version None)
Quarter: 2009Q4

REPORT INFORMATION
  Report Type: 
  Country: None (occurrence: None)
  Receive Date: 20091118
  Receipt Date: 20091118
  Transmission Date: 20100525
  Serious: Yes (Hospitalization)
  Sender: FDA-Public Use
  Company Number: None

PATIENT
  Sex: Male
  Weight: 58.4 kg

DRUGS (1)
  1. TARCEVA [Suspect]
     Dosage: 4350 MG
     Dates: end: 20091006

REACTIONS (6)
  - ASCITES [None]
  - COLITIS [None]
  - DEHYDRATION [None]
  - GASTROINTESTINAL DISORDER [None]
  - GASTROINTESTINAL HAEMORRHAGE [None]
  - HAEMOGLOBIN DECREASED [None]
